FAERS Safety Report 15590091 (Version 1)
Quarter: 2018Q4

REPORT INFORMATION
  Report Type: Spontaneous
  Country: US (occurrence: US)
  Receive Date: 20181106
  Receipt Date: 20181106
  Transmission Date: 20190205
  Serious: Yes (Other)
  Sender: FDA-Public Use
  Company Number: US-IBIGEN-2018.05136

PATIENT
  Age: 58 Year
  Sex: Male

DRUGS (1)
  1. UNK [Suspect]
     Active Substance: UNSPECIFIED INGREDIENT

REACTIONS (3)
  - Medication error [Recovered/Resolved]
  - Acute febrile neutrophilic dermatosis [Recovered/Resolved]
  - Rash [Recovered/Resolved]
